FAERS Safety Report 16107442 (Version 1)
Quarter: 2019Q1

REPORT INFORMATION
  Report Type: Spontaneous
  Country: CH (occurrence: CH)
  Receive Date: 20190322
  Receipt Date: 20190322
  Transmission Date: 20190418
  Serious: Yes (Hospitalization)
  Sender: FDA-Public Use
  Company Number: CH-EISAI MEDICAL RESEARCH-EC-2019-053829

PATIENT
  Age: 75 Year
  Sex: Female

DRUGS (14)
  1. SYMFONA (GINKGO BILOBA) [Suspect]
     Active Substance: GINKGO
     Indication: PRODUCT USED FOR UNKNOWN INDICATION
     Route: 048
     Dates: end: 201901
  2. SIMCORA [Suspect]
     Active Substance: SIMVASTATIN
     Dosage: OVERDOSE (DOSE UNKNOWN, 3 DAYS AT ONCE)
     Route: 048
     Dates: start: 20190121, end: 20190121
  3. ARICEPT [Suspect]
     Active Substance: DONEPEZIL HYDROCHLORIDE
     Indication: PRODUCT USED FOR UNKNOWN INDICATION
     Dosage: DOSE AND FREQUENCY UNKNOWN
     Route: 048
     Dates: end: 201901
  4. ARICEPT [Suspect]
     Active Substance: DONEPEZIL HYDROCHLORIDE
     Dosage: OVERDOSE (DOSE UNKNOWN, 3 DAYS AT ONCE)
     Route: 048
     Dates: start: 20190121, end: 20190121
  5. SIMCORA [Suspect]
     Active Substance: SIMVASTATIN
     Dosage: DOSE AND FREQUENCY UNKNOWN
     Route: 048
     Dates: start: 201901
  6. ZOLOFT [Suspect]
     Active Substance: SERTRALINE HYDROCHLORIDE
     Route: 048
     Dates: start: 201901
  7. LODINE [Suspect]
     Active Substance: ETODOLAC
     Route: 048
     Dates: start: 201901
  8. LODINE [Suspect]
     Active Substance: ETODOLAC
     Indication: PRODUCT USED FOR UNKNOWN INDICATION
     Route: 048
     Dates: end: 201901
  9. ARICEPT [Suspect]
     Active Substance: DONEPEZIL HYDROCHLORIDE
     Dosage: DOSE AND FREQUENCY UNKNOWN
     Route: 048
     Dates: start: 201901
  10. SYMFONA (GINKGO BILOBA) [Suspect]
     Active Substance: GINKGO
     Dosage: OVERDOSE ( 1 DOSE FORM X 3 DAYS AT ONCE)
     Route: 048
     Dates: start: 20190121, end: 20190121
  11. ZOLOFT [Suspect]
     Active Substance: SERTRALINE HYDROCHLORIDE
     Indication: PRODUCT USED FOR UNKNOWN INDICATION
     Route: 048
     Dates: end: 201901
  12. ZOLOFT [Suspect]
     Active Substance: SERTRALINE HYDROCHLORIDE
     Dosage: OVERDOSE (50 MG X 3 DAYS AT ONCE)
     Route: 048
     Dates: start: 20190121, end: 20190121
  13. LODINE [Suspect]
     Active Substance: ETODOLAC
     Dosage: OVERDOSE (300 MG X 3 DAYS AT ONCE)
     Route: 048
     Dates: start: 20190121, end: 20190121
  14. SIMCORA [Suspect]
     Active Substance: SIMVASTATIN
     Indication: PRODUCT USED FOR UNKNOWN INDICATION
     Dosage: DOSE AND FREQUENCY UNKNOWN
     Route: 048
     Dates: end: 201901

REACTIONS (7)
  - Overdose [Recovered/Resolved]
  - Haemoptysis [Recovered/Resolved]
  - Pulmonary alveolar haemorrhage [Recovered/Resolved]
  - Antinuclear antibody positive [None]
  - Antineutrophil cytoplasmic antibody positive [None]
  - Drug interaction [None]
  - Neoplasm [None]

NARRATIVE: CASE EVENT DATE: 20190121
